FAERS Safety Report 15657175 (Version 2)
Quarter: 2018Q4

REPORT INFORMATION
  Report Type: Spontaneous
  Country: UA (occurrence: UA)
  Receive Date: 20181126
  Receipt Date: 20181231
  Transmission Date: 20190205
  Serious: Yes (Other)
  Sender: FDA-Public Use
  Company Number: PHHY2018UA159210

PATIENT
  Age: 80 Year
  Sex: Male
  Weight: 75 kg

DRUGS (1)
  1. AZARGA [Suspect]
     Active Substance: BRINZOLAMIDE\TIMOLOL MALEATE
     Indication: GLAUCOMA TRAUMATIC
     Dosage: 1 GTT, BID
     Route: 057
     Dates: start: 20181114, end: 20181116

REACTIONS (4)
  - Ocular hyperaemia [Recovered/Resolved]
  - Product quality issue [Unknown]
  - Eye pruritus [Recovered/Resolved]
  - Eyelid oedema [Recovered/Resolved]

NARRATIVE: CASE EVENT DATE: 20181115
